FAERS Safety Report 10174229 (Version 2)
Quarter: 2015Q2

REPORT INFORMATION
  Report Type: Spontaneous
  Country: SE (occurrence: SE)
  Receive Date: 20140515
  Receipt Date: 20150427
  Transmission Date: 20150821
  Serious: Yes (Other)
  Sender: FDA-Public Use
  Company Number: SE-ACTAVIS-2014-09679

PATIENT
  Sex: Female

DRUGS (1)
  1. CITALOPRAM [Suspect]
     Active Substance: CITALOPRAM HYDROBROMIDE
     Indication: MENTAL DISORDER
     Dosage: UNK
     Route: 065
     Dates: end: 20130520

REACTIONS (8)
  - Anxiety [Unknown]
  - Cognitive disorder [Unknown]
  - Asthenia [Unknown]
  - Time perception altered [Unknown]
  - Apathy [Unknown]
  - Disability [Unknown]
  - Amnesia [Unknown]
  - Fatigue [Unknown]
